FAERS Safety Report 18549923 (Version 5)
Quarter: 2024Q4

REPORT INFORMATION
  Report Type: Spontaneous
  Country: US (occurrence: US)
  Receive Date: 20201126
  Receipt Date: 20241230
  Transmission Date: 20250114
  Serious: Yes (Other)
  Sender: PFIZER
  Company Number: US-PFIZER INC-2020465605

PATIENT
  Age: 76 Year
  Sex: Male

DRUGS (2)
  1. VYNDAMAX [Suspect]
     Active Substance: TAFAMIDIS
     Indication: Amyloidosis
     Dosage: 61 MG, 1X/DAY
     Route: 048
  2. ELIQUIS [Concomitant]
     Active Substance: APIXABAN
     Dosage: TAKE 0.5 TABLETS BY MOUTH TWO TIMES A DAY
     Route: 048

REACTIONS (6)
  - Amyloidosis [Unknown]
  - Cardiomyopathy [Unknown]
  - Hyperlipidaemia [Unknown]
  - Hypertension [Unknown]
  - Coronary artery disease [Unknown]
  - Dyspnoea [Unknown]
